FAERS Safety Report 10009988 (Version 1)
Quarter: 2014Q1

REPORT INFORMATION
  Report Type: Spontaneous
  Country: US (occurrence: US)
  Receive Date: 20140312
  Receipt Date: 20140312
  Transmission Date: 20141002
  Serious: No
  Sender: FDA-Public Use
  Company Number: US-INCYTE CORPORATION-2013IN000873

PATIENT
  Age: 70 Year
  Sex: Male

DRUGS (9)
  1. JAKAFI [Suspect]
     Indication: MYELOFIBROSIS
     Dosage: 20 MG, BID
     Route: 048
     Dates: start: 20130406
  2. COENZYME Q10 [Concomitant]
  3. MULTIVITAMIN [Concomitant]
  4. PLAVIX [Concomitant]
  5. SINGULAIR [Concomitant]
  6. TYLENOL [Concomitant]
  7. VITAMIN B [Concomitant]
  8. VITAMIN D [Concomitant]
  9. ZANTAC [Concomitant]

REACTIONS (4)
  - Malaise [Unknown]
  - Asthenia [Unknown]
  - Oropharyngeal pain [Unknown]
  - Dysuria [Unknown]
